FAERS Safety Report 7398525-2 (Version None)
Quarter: 2011Q2

REPORT INFORMATION
  Report Type: 
  Country: None (occurrence: None)
  Receive Date: 20110407
  Receipt Date: 20110328
  Transmission Date: 20111010
  Serious: No
  Sender: FDA-Public Use
  Company Number: US-BIOGENIDEC-2011BI001104

PATIENT
  Sex: Female

DRUGS (1)
  1. TYSABRI [Suspect]
     Indication: MULTIPLE SCLEROSIS
     Route: 042
     Dates: start: 20080206

REACTIONS (6)
  - HYPOAESTHESIA [None]
  - VISION BLURRED [None]
  - NERVE COMPRESSION [None]
  - VISUAL IMPAIRMENT [None]
  - STRESS [None]
  - MULTIPLE SCLEROSIS [None]
